FAERS Safety Report 11279172 (Version 4)
Quarter: 2015Q4

REPORT INFORMATION
  Report Type: Spontaneous
  Country: CH (occurrence: CH)
  Receive Date: 20150717
  Receipt Date: 20151005
  Transmission Date: 20160304
  Serious: Yes (Other)
  Sender: FDA-Public Use
  Company Number: CH-BAYER-2015-373868

PATIENT
  Age: 63 Year
  Sex: Male
  Weight: 100 kg

DRUGS (1)
  1. XOFIGO [Suspect]
     Active Substance: RADIUM RA-223 DICHLORIDE
     Indication: PROSTATE CANCER
     Dosage: UNK
     Dates: start: 20150130, end: 20150424

REACTIONS (7)
  - Abdominal pain [Unknown]
  - Systemic inflammatory response syndrome [Unknown]
  - Blood disorder [Unknown]
  - Drug ineffective [None]
  - Bone pain [Unknown]
  - Night sweats [Unknown]
  - Inflammation [Unknown]

NARRATIVE: CASE EVENT DATE: 20150424
